FAERS Safety Report 7340494-5 (Version None)
Quarter: 2011Q1

REPORT INFORMATION
  Report Type: 
  Country: None (occurrence: None)
  Receive Date: 20110218
  Receipt Date: 20101018
  Transmission Date: 20110831
  Serious: Yes (Hospitalization)
  Sender: FDA-Public Use
  Company Number: 20101018CINRY1656

PATIENT
  Sex: Male

DRUGS (9)
  1. NEXIUM [Concomitant]
  2. CELEBREX [Concomitant]
  3. SEROQUEL [Concomitant]
  4. CINRYZE [Suspect]
     Indication: HEREDITARY ANGIOEDEMA
     Dosage: INTRAVENOUS
     Route: 042
  5. NORVASC [Concomitant]
  6. ALLEGRA [Concomitant]
  7. ATENOLOL [Concomitant]
  8. HYDROCHLOROTHIAZIDE [Concomitant]
  9. BERINERT [Suspect]
     Indication: HEREDITARY ANGIOEDEMA

REACTIONS (7)
  - RASH [None]
  - DRUG INEFFECTIVE [None]
  - INTERVERTEBRAL DISC DEGENERATION [None]
  - HEREDITARY ANGIOEDEMA [None]
  - SPINAL COLUMN STENOSIS [None]
  - URTICARIA [None]
  - ANGIOEDEMA [None]
